FAERS Safety Report 18120122 (Version 5)
Quarter: 2020Q4

REPORT INFORMATION
  Report Type: Report from Study
  Country: AU (occurrence: AU)
  Receive Date: 20200806
  Receipt Date: 20201119
  Transmission Date: 20210113
  Serious: Yes (Death, Life-Threatening, Hospitalization, Disabling, Other)
  Sender: FDA-Public Use
  Company Number: AU-BRISTOL-MYERS SQUIBB COMPANY-BMS-2020-039905

PATIENT
  Age: 76 Year
  Sex: Male

DRUGS (2)
  1. OXYCONTIN [Suspect]
     Active Substance: OXYCODONE HYDROCHLORIDE
     Indication: TUMOUR PAIN
     Dosage: UNK
     Route: 065
  2. NIVOLUMAB [Suspect]
     Active Substance: NIVOLUMAB
     Indication: MALIGNANT MELANOMA
     Dosage: 240 MILLIGRAM, Q2WK
     Route: 042

REACTIONS (17)
  - Fall [Unknown]
  - Asthenia [Unknown]
  - Somnolence [Unknown]
  - Nausea [Unknown]
  - Mobility decreased [Unknown]
  - Gait inability [Unknown]
  - Decreased appetite [Unknown]
  - Death [Fatal]
  - Central nervous system lesion [Unknown]
  - Gait disturbance [Unknown]
  - Gastrointestinal motility disorder [Unknown]
  - Tumour pain [Unknown]
  - Disorientation [Unknown]
  - Paraesthesia [Unknown]
  - Confusional state [Unknown]
  - Fatigue [Unknown]
  - Weight decreased [Unknown]

NARRATIVE: CASE EVENT DATE: 20200520
